FAERS Safety Report 8949800 (Version 1)
Quarter: 2012Q4

REPORT INFORMATION
  Report Type: 
  Country: FR (occurrence: FR)
  Receive Date: 20121206
  Receipt Date: 20121206
  Transmission Date: 20130627
  Serious: Yes (Hospitalization)
  Sender: FDA-Public Use
  Company Number: FR-ASTRAZENECA-2012SE90428

PATIENT
  Age: 6149 Day
  Sex: Male

DRUGS (5)
  1. ACTISKENAN [Suspect]
     Route: 048
     Dates: start: 20100726
  2. INEXIUM [Suspect]
     Route: 048
     Dates: start: 20100726, end: 20100728
  3. LOVENOX [Suspect]
     Route: 058
     Dates: start: 20100726
  4. BIPROFENID [Suspect]
     Route: 048
     Dates: start: 20100726, end: 20100728
  5. CONTRAMAL [Suspect]
     Route: 048
     Dates: start: 20100726, end: 20100728

REACTIONS (3)
  - Tubulointerstitial nephritis [Recovered/Resolved]
  - Hepatocellular injury [Recovered/Resolved]
  - Cholestasis [Recovered/Resolved]
